FAERS Safety Report 15295496 (Version 1)
Quarter: 2018Q3

REPORT INFORMATION
  Report Type: Spontaneous
  Country: FR (occurrence: FR)
  Receive Date: 20180820
  Receipt Date: 20180820
  Transmission Date: 20181010
  Serious: Yes (Death)
  Sender: FDA-Public Use
  Company Number: FR-MYLANLABS-2018M1061393

PATIENT
  Age: 44 Year
  Sex: Male

DRUGS (2)
  1. HEPARIN [Suspect]
     Active Substance: HEPARIN SODIUM
     Indication: PULMONARY EMBOLISM
  2. HEPARIN [Suspect]
     Active Substance: HEPARIN SODIUM
     Indication: ANTICOAGULANT THERAPY
     Route: 065

REACTIONS (6)
  - Mydriasis [Fatal]
  - Brain stem embolism [Fatal]
  - Haemorrhagic transformation stroke [Fatal]
  - Brain death [Fatal]
  - Brain oedema [Fatal]
  - Areflexia [Fatal]
